FAERS Safety Report 5118026-1 (Version None)
Quarter: 2006Q3

REPORT INFORMATION
  Report Type: 
  Country: None (occurrence: None)
  Receive Date: 20060929
  Receipt Date: 20060627
  Transmission Date: 20061208
  Serious: Yes (Life-Threatening, Hospitalization)
  Sender: FDA-Public Use
  Company Number: US-BOEHRINGER INGELHEIM PHARMACEUTICALS, INC.-2006-BP-07383BP

PATIENT
  Sex: Female
  Weight: 86 kg

DRUGS (12)
  1. MIRAPEX [Suspect]
     Indication: RESTLESS LEGS SYNDROME
     Route: 048
     Dates: start: 20020101, end: 20060201
  2. PLAVIX [Concomitant]
     Indication: CARDIAC DISORDER
  3. LASIX [Concomitant]
     Indication: CARDIAC DISORDER
  4. ZETIA [Concomitant]
     Indication: HYPERCHOLESTEROLAEMIA
  5. ASPIRIN [Concomitant]
     Indication: CARDIAC DISORDER
  6. IMDUR [Concomitant]
     Indication: CARDIAC DISORDER
  7. NEXIUM [Concomitant]
  8. TYLENOL [Concomitant]
  9. PROZAC [Concomitant]
     Dates: end: 20060301
  10. KLONOPIN [Concomitant]
     Dates: start: 20060401
  11. K-DUR 10 [Concomitant]
  12. TRIAVIL [Concomitant]

REACTIONS (9)
  - CORONARY ARTERY OCCLUSION [None]
  - HALLUCINATION [None]
  - JOB DISSATISFACTION [None]
  - NARCOLEPSY [None]
  - OBSESSIVE-COMPULSIVE DISORDER [None]
  - OVERDOSE [None]
  - PATHOLOGICAL GAMBLING [None]
  - PNEUMONIA [None]
  - SUICIDE ATTEMPT [None]
